FAERS Safety Report 8007994-6 (Version None)
Quarter: 2011Q4

REPORT INFORMATION
  Report Type: 
  Country: None (occurrence: None)
  Receive Date: 20111227
  Receipt Date: 20111213
  Transmission Date: 20120403
  Serious: Yes (Hospitalization)
  Sender: FDA-Public Use
  Company Number: PHHY2010NZ86420

PATIENT
  Sex: Male

DRUGS (6)
  1. CLOZAPINE [Suspect]
     Dosage: UNK
     Dates: end: 20111121
  2. SIMAVASTATIN [Concomitant]
     Indication: BLOOD CHOLESTEROL INCREASED
     Dosage: 20 MG
     Route: 048
     Dates: end: 20101214
  3. CLOZAPINE [Suspect]
     Indication: SCHIZOPHRENIA
     Dosage: 650 MG
     Route: 048
     Dates: start: 20080911, end: 20101215
  4. CLOZAPINE [Suspect]
     Indication: PSYCHOTIC DISORDER
     Dates: start: 20080911
  5. AMISULPRIDE [Concomitant]
     Indication: PSYCHOTIC DISORDER
     Dosage: 400 MG
     Route: 048
     Dates: end: 20101217
  6. OLANZAPINE [Concomitant]
     Dates: start: 20110101

REACTIONS (7)
  - ASTHENIA [None]
  - FATIGUE [None]
  - MYOGLOBINURIA [None]
  - BLOOD CREATINE PHOSPHOKINASE INCREASED [None]
  - MYALGIA [None]
  - MYOSITIS [None]
  - INFLUENZA LIKE ILLNESS [None]
